FAERS Safety Report 25102075 (Version 1)
Quarter: 2025Q1

REPORT INFORMATION
  Report Type: Spontaneous
  Country: US (occurrence: US)
  Receive Date: 20250320
  Receipt Date: 20250320
  Transmission Date: 20250409
  Serious: Yes (Hospitalization)
  Sender: MERCK SHARP & DOHME LLC
  Company Number: US-009507513-2264296

PATIENT
  Age: 61 Year
  Sex: Female

DRUGS (4)
  1. KEYTRUDA [Suspect]
     Active Substance: PEMBROLIZUMAB
     Indication: Thyroid cancer
  2. LENVATINIB MESYLATE [Suspect]
     Active Substance: LENVATINIB MESYLATE
     Indication: Thyroid cancer
     Route: 048
     Dates: start: 20240304, end: 202410
  3. LENVATINIB MESYLATE [Suspect]
     Active Substance: LENVATINIB MESYLATE
     Indication: Thyroid cancer
     Dosage: 10 MG ON ONE DAY AND 8 MG ON THE NEXT DAY.
     Route: 048
     Dates: start: 202410, end: 20250128
  4. LENVATINIB MESYLATE [Suspect]
     Active Substance: LENVATINIB MESYLATE
     Indication: Thyroid cancer
     Dosage: 10 MG ON ONE DAY AND 8 MG ON THE NEXT DAY.
     Route: 048
     Dates: start: 202410, end: 20250128

REACTIONS (3)
  - Diabetes mellitus [Not Recovered/Not Resolved]
  - Weight decreased [Not Recovered/Not Resolved]
  - Diarrhoea [Recovered/Resolved]

NARRATIVE: CASE EVENT DATE: 20240301
